FAERS Safety Report 14140133 (Version 2)
Quarter: 2018Q1

REPORT INFORMATION
  Report Type: Spontaneous
  Country: US (occurrence: US)
  Receive Date: 20171030
  Receipt Date: 20180204
  Transmission Date: 20180508
  Serious: Yes (Hospitalization, Other)
  Sender: FDA-Public Use
  Company Number: US-BRISTOL-MYERS SQUIBB COMPANY-BMS-2017-094068

PATIENT
  Age: 73 Year
  Sex: Male
  Weight: 76 kg

DRUGS (12)
  1. FLOMAX [Concomitant]
     Active Substance: TAMSULOSIN HYDROCHLORIDE
     Indication: BENIGN PROSTATIC HYPERPLASIA
     Dosage: UNK
     Route: 065
     Dates: start: 20170412
  2. PREDNISONE. [Concomitant]
     Active Substance: PREDNISONE
     Indication: TRANSAMINASES
     Dosage: UNK
     Route: 065
     Dates: start: 20170622
  3. CALCIUM 600+D3 [Concomitant]
     Active Substance: CALCIUM CARBONATE\VITAMIN D
     Indication: PRODUCT USED FOR UNKNOWN INDICATION
     Dosage: UNK
     Route: 065
     Dates: start: 20170111
  4. ALUMINIUM HYDROXIDE W/DIPHENHYDRAMI/08393401/ [Concomitant]
     Indication: MUCOSAL INFLAMMATION
     Dosage: UNK
     Route: 065
     Dates: start: 20170215
  5. MIRALAX [Concomitant]
     Active Substance: POLYETHYLENE GLYCOL 3350
     Indication: CONSTIPATION
     Dosage: UNK
     Route: 065
     Dates: start: 20170329
  6. AXITINIB [Suspect]
     Active Substance: AXITINIB
     Indication: RENAL CELL CARCINOMA
     Dosage: 5 MG, BID
     Route: 048
     Dates: start: 20161125
  7. ASPIRIN                            /00002701/ [Concomitant]
     Active Substance: ASPIRIN
     Indication: CORONARY ARTERY DISEASE
     Dosage: UNK
     Route: 065
     Dates: start: 20161101
  8. COUMADIN [Suspect]
     Active Substance: WARFARIN SODIUM
     Indication: DEEP VEIN THROMBOSIS
     Dosage: 5 MG, QD
     Route: 048
     Dates: start: 20170316, end: 20171116
  9. SYNTHROID [Concomitant]
     Active Substance: LEVOTHYROXINE SODIUM
     Indication: HYPOTHYROIDISM
     Dosage: UNK
     Route: 065
     Dates: start: 20170817
  10. MENTHOL W/ZINC OXIDE [Concomitant]
     Indication: PRODUCT USED FOR UNKNOWN INDICATION
     Dosage: UNK
     Route: 065
     Dates: start: 20170816
  11. OXYCODONE [Concomitant]
     Active Substance: OXYCODONE
     Indication: PAIN
     Dosage: UNK
     Route: 065
     Dates: start: 20170118
  12. JANUVIA [Concomitant]
     Active Substance: SITAGLIPTIN PHOSPHATE
     Indication: HYPERGLYCAEMIA
     Dosage: UNK
     Route: 065
     Dates: start: 20161221

REACTIONS (4)
  - Lower gastrointestinal haemorrhage [Recovered/Resolved]
  - Anticoagulation drug level above therapeutic [Unknown]
  - Diverticulum [Unknown]
  - Rectal haemorrhage [Unknown]

NARRATIVE: CASE EVENT DATE: 20170920
